FAERS Safety Report 17204212 (Version 2)
Quarter: 2020Q1

REPORT INFORMATION
  Report Type: Spontaneous
  Country: FR (occurrence: FR)
  Receive Date: 20191226
  Receipt Date: 20200101
  Transmission Date: 20200409
  Serious: Yes (Other)
  Sender: FDA-Public Use
  Company Number: FR-MYLANLABS-2019M1127033

PATIENT
  Age: 36 Year
  Sex: Male
  Weight: 47.8 kg

DRUGS (9)
  1. LERCANIDIPINE ARROW GENERIQUES [Suspect]
     Active Substance: LERCANIDIPINE HYDROCHLORIDE
     Indication: HYPERTENSION
     Dosage: 10 MILLIGRAM, QD, 1-0-0
     Route: 048
     Dates: start: 20190720, end: 20190812
  2. LOVENOX [Suspect]
     Active Substance: ENOXAPARIN SODIUM
     Indication: THROMBOSIS PROPHYLAXIS
     Dosage: 4000 INTERNATIONAL UNIT, QD, 0-0-1
     Route: 058
     Dates: start: 20190720
  3. ATENOLOL ARROW [Suspect]
     Active Substance: ATENOLOL
     Indication: HYPERTENSION
     Dosage: 50 MILLIGRAM, QD, 1-0-0
     Route: 048
     Dates: start: 20190806
  4. RAMIPRIL MYLAN [Suspect]
     Active Substance: RAMIPRIL
     Indication: HYPERTENSION
     Dosage: 5 MILLIGRAM, QD, 0-1-0
     Route: 048
     Dates: start: 20190720
  5. LANSOPRAZOLE MYLAN [Suspect]
     Active Substance: LANSOPRAZOLE
     Indication: PEPTIC ULCER
     Dosage: 15 MILLIGRAM, QD, 0-0-1
     Route: 048
     Dates: start: 20190720
  6. NULOJIX [Suspect]
     Active Substance: BELATACEPT
     Indication: PROPHYLAXIS AGAINST TRANSPLANT REJECTION
     Dosage: 300 MILLIGRAM, QD
     Route: 042
     Dates: start: 20190811, end: 20190816
  7. CELLCEPT [Concomitant]
     Active Substance: MYCOPHENOLATE MOFETIL\MYCOPHENOLATE MOFETIL HYDROCHLORIDE
     Indication: PROPHYLAXIS AGAINST TRANSPLANT REJECTION
     Dosage: 1000 MILLIGRAM, QD, 1-0-1
     Route: 048
  8. EUPRESSYL                          /00631801/ [Concomitant]
     Active Substance: URAPIDIL
     Indication: HYPERTENSION
     Dosage: 30 MILLIGRAM, QD, 1-0-0
     Route: 048
  9. LANTUS [Suspect]
     Active Substance: INSULIN GLARGINE
     Indication: DIABETES MELLITUS
     Dosage: 30 UI LE SOIR
     Route: 057
     Dates: start: 20190720

REACTIONS (2)
  - Anaemia [Not Recovered/Not Resolved]
  - Medication error [Recovered/Resolved]

NARRATIVE: CASE EVENT DATE: 20190811
